FAERS Safety Report 11435359 (Version 2)
Quarter: 2015Q3

REPORT INFORMATION
  Report Type: Spontaneous
  Country: US (occurrence: US)
  Receive Date: 20150831
  Receipt Date: 20150924
  Transmission Date: 20151125
  Serious: Yes (Hospitalization)
  Sender: FDA-Public Use
  Company Number: US-PFIZER INC-2015277729

PATIENT
  Age: 70 Year
  Sex: Female

DRUGS (1)
  1. ADVIL PM [Suspect]
     Active Substance: DIPHENHYDRAMINE CITRATE\IBUPROFEN
     Indication: SLEEP DISORDER
     Dosage: 1 DF, AS NEEDED

REACTIONS (3)
  - Choking sensation [Recovered/Resolved]
  - Product difficult to swallow [Recovered/Resolved]
  - Dysphagia [Recovered/Resolved]
